FAERS Safety Report 19425402 (Version 1)
Quarter: 2021Q2

REPORT INFORMATION
  Report Type: Spontaneous
  Country: KR (occurrence: KR)
  Receive Date: 20210617
  Receipt Date: 20210617
  Transmission Date: 20210717
  Serious: Yes (Hospitalization, Other)
  Sender: FDA-Public Use
  Company Number: KR-NOVAST LABORATORIES INC.-2021NOV000272

PATIENT
  Age: 55 Year
  Sex: Male

DRUGS (5)
  1. XELODA [Concomitant]
     Active Substance: CAPECITABINE
     Indication: PANCREATIC CARCINOMA
     Dosage: UNK
     Route: 065
  2. LEUCOVORIN. [Concomitant]
     Active Substance: LEUCOVORIN
     Indication: PANCREATIC CARCINOMA
     Dosage: 348 MILLIGRAM/SQ. METER
     Route: 065
     Dates: start: 201702, end: 201903
  3. IRINOTECAN HYDROCHLORIDE. [Suspect]
     Active Substance: IRINOTECAN HYDROCHLORIDE
     Indication: PANCREATIC CARCINOMA
     Dosage: 313.2 MILLIGRAM/SQ. METER
     Route: 065
     Dates: start: 201702, end: 201903
  4. OXALIPLATIN. [Suspect]
     Active Substance: OXALIPLATIN
     Indication: PANCREATIC CARCINOMA
     Dosage: 147.9 MILLIGRAM/SQ. METER
     Route: 065
     Dates: start: 201702, end: 201903
  5. FLUOROURACIL. [Suspect]
     Active Substance: FLUOROURACIL
     Indication: PANCREATIC CARCINOMA
     Dosage: 2784 MILLIGRAM/SQ. METER
     Route: 065
     Dates: start: 201702, end: 201903

REACTIONS (5)
  - Portal hypertension [Recovered/Resolved]
  - Hypersplenism [Recovered/Resolved]
  - Drug-induced liver injury [Recovering/Resolving]
  - Thrombocytopenia [Not Recovered/Not Resolved]
  - Neutropenia [Unknown]
